FAERS Safety Report 15752991 (Version 1)
Quarter: 2018Q4

REPORT INFORMATION
  Report Type: Spontaneous
  Country: PT (occurrence: PT)
  Receive Date: 20181221
  Receipt Date: 20181221
  Transmission Date: 20190205
  Serious: Yes (Disabling)
  Sender: FDA-Public Use
  Company Number: PT-TEVA-2018-PT-989530

PATIENT
  Sex: Female

DRUGS (4)
  1. BECOZYME FORTE [Concomitant]
     Route: 048
     Dates: start: 20180405
  2. ANASTROZOL TEVA [Suspect]
     Active Substance: ANASTROZOLE
     Indication: BREAST CANCER
     Dosage: 1 MILLIGRAM DAILY;
     Route: 048
     Dates: start: 20151202, end: 20180719
  3. CALCIUM D SANDOZ [Concomitant]
     Route: 048
     Dates: start: 20180405
  4. TRASTUZUMAB. [Concomitant]
     Active Substance: TRASTUZUMAB
     Dates: start: 201512, end: 201609

REACTIONS (4)
  - Myalgia [Unknown]
  - Arthralgia [Unknown]
  - Dizziness [Unknown]
  - Product substitution issue [Unknown]

NARRATIVE: CASE EVENT DATE: 201607
